FAERS Safety Report 4407141-3 (Version None)
Quarter: 2004Q3

REPORT INFORMATION
  Report Type: 
  Country: None (occurrence: None)
  Receive Date: 20040723
  Receipt Date: 20040723
  Transmission Date: 20050211
  Serious: Yes (Other)
  Sender: FDA-Public Use
  Company Number: None

PATIENT
  Age: 78 Year
  Sex: Male

DRUGS (15)
  1. FENTANYL [Suspect]
  2. LORAZEPAM [Concomitant]
  3. CLONAZEPAM [Concomitant]
  4. CEPHALEXIN [Concomitant]
  5. MORPHINE [Concomitant]
  6. SILVER SULFADIAZINE [Concomitant]
  7. OMEPRAZOLE [Concomitant]
  8. MIRTAZAPINE [Concomitant]
  9. LIDOCAINE [Concomitant]
  10. GABAPENTIN [Concomitant]
  11. FUROSEMIDE [Concomitant]
  12. CITALOPRAM [Concomitant]
  13. ZOLPIDEM TARTRATE [Concomitant]
  14. LOPERAMIDE HCL [Concomitant]
  15. MORPHINE [Concomitant]

REACTIONS (1)
  - DELIRIUM [None]
